FAERS Safety Report 5570514-X (Version None)
Quarter: 2007Q4

REPORT INFORMATION
  Report Type: 
  Country: None (occurrence: None)
  Receive Date: 20071221
  Receipt Date: 20071120
  Transmission Date: 20080405
  Serious: No
  Sender: FDA-Public Use
  Company Number: US-BRISTOL-MYERS SQUIBB COMPANY-13988241

PATIENT
  Age: 57 Year
  Sex: Female
  Weight: 97 kg

DRUGS (16)
  1. ORENCIA [Suspect]
     Indication: RHEUMATOID ARTHRITIS
     Dosage: 1 DF= 3 VIALS,INCREASED TO 4 VIALS FOR THE PAST 3 MONTHS THERAPY DURATION:1.5 YEARS
     Route: 042
     Dates: start: 20060101
  2. ATENOLOL [Concomitant]
  3. NEXIUM [Concomitant]
  4. DIOVAN [Concomitant]
  5. PAXIL [Concomitant]
  6. LIPITOR [Concomitant]
  7. METHOTREXATE [Concomitant]
  8. MOBIC [Concomitant]
  9. NEURONTIN [Concomitant]
  10. KLONOPIN [Concomitant]
  11. FOLIC ACID [Concomitant]
  12. MAGNESIUM [Concomitant]
  13. ASPIRIN [Concomitant]
  14. ASCORBIC ACID [Concomitant]
  15. VITAMIN E [Concomitant]
  16. CALCIUM + VITAMIN D [Concomitant]

REACTIONS (2)
  - AMNESIA [None]
  - SINUS DISORDER [None]
